FAERS Safety Report 15128651 (Version 1)
Quarter: 2018Q3

REPORT INFORMATION
  Report Type: Spontaneous
  Country: US (occurrence: US)
  Receive Date: 20180711
  Receipt Date: 20180711
  Transmission Date: 20181010
  Serious: Yes (Hospitalization, Other)
  Sender: FDA-Public Use
  Company Number: US-009507513-1807USA003207

PATIENT
  Sex: Female

DRUGS (1)
  1. FOSAMAX [Suspect]
     Active Substance: ALENDRONATE SODIUM
     Indication: OSTEOPOROSIS
     Dosage: UNK, ONCE A WEEK, FOR YEARS
     Route: 048
     Dates: end: 201601

REACTIONS (9)
  - Throat cancer [Recovered/Resolved]
  - Adverse drug reaction [Unknown]
  - Blood potassium decreased [Unknown]
  - Blood magnesium decreased [Unknown]
  - Osteoporosis [Not Recovered/Not Resolved]
  - Fatigue [Unknown]
  - Renal disorder [Unknown]
  - Wrong technique in product usage process [Unknown]
  - Pneumonia aspiration [Unknown]
